FAERS Safety Report 4837655-3 (Version None)
Quarter: 2005Q4

REPORT INFORMATION
  Report Type: 
  Country: None (occurrence: None)
  Receive Date: 20051128
  Receipt Date: 20051118
  Transmission Date: 20060501
  Serious: Yes (Other)
  Sender: FDA-Public Use
  Company Number: US-MERCK-0511USA03273

PATIENT
  Age: 72 Year
  Sex: Male

DRUGS (3)
  1. INDOCIN [Suspect]
     Route: 048
  2. TRUSOPT [Suspect]
     Indication: DRY EYE
     Route: 047
  3. LISINOPRIL [Suspect]
     Route: 065

REACTIONS (1)
  - METABOLIC ACIDOSIS [None]
